FAERS Safety Report 6689640-7 (Version None)
Quarter: 2010Q2

REPORT INFORMATION
  Report Type: 
  Country: None (occurrence: None)
  Receive Date: 20100421
  Receipt Date: 20100412
  Transmission Date: 20101027
  Serious: Yes (Other)
  Sender: FDA-Public Use
  Company Number: US-BIOGENIDEC-2010BI004802

PATIENT
  Age: 52 Year
  Sex: Male

DRUGS (3)
  1. AVONEX [Suspect]
     Indication: MULTIPLE SCLEROSIS
     Route: 030
     Dates: start: 20100205, end: 20100205
  2. AVONEX [Suspect]
     Route: 030
     Dates: start: 20080812, end: 20080812
  3. COPAXONE [Concomitant]
     Dates: end: 20100301

REACTIONS (2)
  - CONVULSION [None]
  - MALAISE [None]
